FAERS Safety Report 21907004 (Version 1)
Quarter: 2023Q1

REPORT INFORMATION
  Report Type: Spontaneous
  Country: IT (occurrence: IT)
  Receive Date: 20230125
  Receipt Date: 20230125
  Transmission Date: 20230417
  Serious: No
  Sender: FDA-Public Use
  Company Number: IT-PADAGIS-2023PAD00034

PATIENT

DRUGS (1)
  1. CYCLOSPORINE [Suspect]
     Active Substance: CYCLOSPORINE
     Indication: Benign familial pemphigus
     Dosage: 5 MG/KG DAY, QD (6 MONTHS)
     Route: 065

REACTIONS (3)
  - Therapy partial responder [Unknown]
  - Treatment noncompliance [Unknown]
  - Product use in unapproved indication [Unknown]
